FAERS Safety Report 6015754-0 (Version None)
Quarter: 2008Q4

REPORT INFORMATION
  Report Type: 
  Country: None (occurrence: None)
  Receive Date: 20081222
  Receipt Date: 20080620
  Transmission Date: 20090506
  Serious: No
  Sender: FDA-Public Use
  Company Number: US-BAYER-200812802BCC

PATIENT
  Sex: Female
  Weight: 81 kg

DRUGS (5)
  1. ALEVE (CAPLET) [Suspect]
     Indication: HEADACHE
     Dosage: TOTAL DAILY DOSE: 440 MG  UNIT DOSE: 220 MG
     Route: 048
  2. ALEVE (CAPLET) [Suspect]
     Dosage: TOTAL DAILY DOSE: 880 MG  UNIT DOSE: 220 MG
     Route: 048
  3. ALEVE (CAPLET) [Suspect]
     Route: 048
  4. ZESTRIL [Concomitant]
     Route: 048
  5. EXCEDRIN [Concomitant]

REACTIONS (2)
  - ARTHRITIS [None]
  - HEADACHE [None]
